FAERS Safety Report 7522725 (Version 2)
Quarter: 2013Q3

REPORT INFORMATION
  Report Type: Spontaneous
  Country: US (occurrence: US)
  Receive Date: 20100803
  Receipt Date: 20130731
  Transmission Date: 20140515
  Serious: Yes (Other)
  Sender: FDA-Public Use
  Company Number: US-JNJFOC-20100707787

PATIENT
  Age: 30 Year
  Sex: Female
  Weight: 99.79 kg

DRUGS (13)
  1. REMICADE [Suspect]
     Indication: FIBROMYALGIA
     Route: 042
     Dates: start: 20100429
  2. REMICADE [Suspect]
     Indication: FIBROMYALGIA
     Route: 042
     Dates: start: 20101103
  3. REMICADE [Suspect]
     Indication: FIBROMYALGIA
     Route: 042
     Dates: start: 20100129
  4. REMICADE [Suspect]
     Indication: COLITIS ULCERATIVE
     Route: 042
     Dates: start: 20101103
  5. REMICADE [Suspect]
     Indication: COLITIS ULCERATIVE
     Route: 042
     Dates: start: 20100429
  6. REMICADE [Suspect]
     Indication: COLITIS ULCERATIVE
     Route: 042
     Dates: start: 20100129
  7. REMICADE [Suspect]
     Indication: CROHN^S DISEASE
     Route: 042
     Dates: start: 20101103
  8. REMICADE [Suspect]
     Indication: CROHN^S DISEASE
     Route: 042
     Dates: start: 20100429
  9. REMICADE [Suspect]
     Indication: CROHN^S DISEASE
     Route: 042
     Dates: start: 20100129
  10. ASACOL [Concomitant]
     Indication: CROHN^S DISEASE
  11. ASACOL [Concomitant]
     Indication: COLITIS ULCERATIVE
  12. ULTRAM [Concomitant]
     Indication: PAIN
  13. IRON [Concomitant]
     Indication: MEDICAL DIET

REACTIONS (10)
  - Respiratory arrest [Recovered/Resolved]
  - Syncope [Recovered/Resolved]
  - Hypersensitivity [Recovered/Resolved]
  - Uterine infection [Unknown]
  - Infusion related reaction [Recovered/Resolved]
  - Incorrect drug administration rate [Recovered/Resolved]
  - Arthralgia [Unknown]
  - Haemorrhage [Recovered/Resolved]
  - Deafness [Recovered/Resolved]
  - Eye movement disorder [Recovered/Resolved]
